FAERS Safety Report 23606142 (Version 1)
Quarter: 2024Q1

REPORT INFORMATION
  Report Type: Spontaneous
  Country: US (occurrence: US)
  Receive Date: 20240307
  Receipt Date: 20240307
  Transmission Date: 20240410
  Serious: No
  Sender: FDA-Public Use
  Company Number: US-APIL-2315061US

PATIENT
  Sex: Male

DRUGS (1)
  1. TAZORAC [Suspect]
     Active Substance: TAZAROTENE
     Indication: Psoriasis
     Dosage: DOSE DESC: UNK UNK, QD (ONCE DAILY AT NIGH)?TAZORAC CREAM 0.1%
     Route: 061

REACTIONS (3)
  - Therapeutic response unexpected [Unknown]
  - Skin discolouration [Recovering/Resolving]
  - Nasal congestion [Unknown]
